FAERS Safety Report 14421342 (Version 2)
Quarter: 2018Q1

REPORT INFORMATION
  Report Type: Spontaneous
  Country: US (occurrence: US)
  Receive Date: 20180122
  Receipt Date: 20180205
  Transmission Date: 20180509
  Serious: Yes (Other)
  Sender: FDA-Public Use
  Company Number: US-ALLERGAN-1764158US

PATIENT
  Age: 50 Year
  Sex: Female

DRUGS (3)
  1. REFRESH OPTIVE ADVANCED [Suspect]
     Active Substance: CARBOXYMETHYLCELLULOSE SODIUM\GLYCERIN\POLYSORBATE 80
     Indication: DRY EYE
     Dosage: 1 OR 2 DROPS
     Route: 047
     Dates: start: 2008
  2. BOIRON OPTIQUE [Concomitant]
     Dosage: UNK
     Route: 047
  3. EYEBRITE VITAMINS [Concomitant]
     Dosage: UNK
     Route: 047

REACTIONS (6)
  - Drug ineffective [Unknown]
  - Vitreous floaters [Unknown]
  - Photopsia [Unknown]
  - Retinal detachment [Unknown]
  - Seasonal allergy [Not Recovered/Not Resolved]
  - Eye irritation [Unknown]
